FAERS Safety Report 7929356-X (Version None)
Quarter: 2011Q4

REPORT INFORMATION
  Report Type: 
  Country: None (occurrence: None)
  Receive Date: 20111121
  Receipt Date: 20111114
  Transmission Date: 20120403
  Serious: No
  Sender: FDA-Public Use
  Company Number: US-BIOGENIDEC-2011BI043574

PATIENT
  Age: 45 Year
  Sex: Female

DRUGS (2)
  1. TYSABRI [Suspect]
     Indication: MULTIPLE SCLEROSIS
     Route: 042
     Dates: start: 20100125
  2. TYSABRI [Suspect]
     Route: 042
     Dates: start: 20080407, end: 20090105

REACTIONS (3)
  - URINARY RETENTION [None]
  - OEDEMA PERIPHERAL [None]
  - URINARY INCONTINENCE [None]
